FAERS Safety Report 6640403-8 (Version None)
Quarter: 2010Q1

REPORT INFORMATION
  Report Type: 
  Country: None (occurrence: None)
  Receive Date: 20100302
  Receipt Date: 20100212
  Transmission Date: 20100710
  Serious: No
  Sender: FDA-Public Use
  Company Number: 2010-00249

PATIENT
  Age: 62 Year
  Sex: Male
  Weight: 124.7392 kg

DRUGS (1)
  1. ZICAM COUGH MAX COUGH SPRAY [Suspect]
     Indication: COUGH
     Dosage: QID - 5 DAYS
     Dates: start: 20081101

REACTIONS (2)
  - AGEUSIA [None]
  - ANOSMIA [None]
